FAERS Safety Report 7659286-2 (Version None)
Quarter: 2011Q3

REPORT INFORMATION
  Report Type: 
  Country: None (occurrence: None)
  Receive Date: 20110805
  Receipt Date: 20110729
  Transmission Date: 20111222
  Serious: Yes (Other)
  Sender: FDA-Public Use
  Company Number: US-CEPHALON-2011003845

PATIENT
  Age: 60 Year
  Sex: Female
  Weight: 41 kg

DRUGS (3)
  1. WELLBUTRIN SR [Suspect]
     Dates: start: 20090101, end: 20110701
  2. PROVIGIL [Suspect]
     Route: 048
     Dates: start: 20090616, end: 20110701
  3. CYMBALTA [Suspect]
     Dates: start: 20090101, end: 20110701

REACTIONS (12)
  - CUTIS LAXA [None]
  - PRURITUS [None]
  - WOUND SECRETION [None]
  - FALL [None]
  - COELIAC DISEASE [None]
  - SKIN LESION [None]
  - IMPAIRED HEALING [None]
  - DRY SKIN [None]
  - OEDEMA PERIPHERAL [None]
  - RASH [None]
  - LIMB INJURY [None]
  - LIVER DISORDER [None]
